FAERS Safety Report 4880258-5 (Version None)
Quarter: 2006Q1

REPORT INFORMATION
  Report Type: 
  Country: None (occurrence: None)
  Receive Date: 20060113
  Receipt Date: 20060104
  Transmission Date: 20060701
  Serious: Yes (Hospitalization)
  Sender: FDA-Public Use
  Company Number: US-ABBOTT-06P-163-0321138-00

PATIENT
  Sex: Female
  Weight: 63.56 kg

DRUGS (11)
  1. HUMIRA [Suspect]
     Indication: RHEUMATOID ARTHRITIS
     Route: 058
     Dates: start: 20030101, end: 20051001
  2. LEFLUNOMIDE [Concomitant]
     Indication: DRUG USE FOR UNKNOWN INDICATION
     Route: 048
  3. PREDNISONE [Concomitant]
     Indication: RHEUMATOID ARTHRITIS
     Route: 048
  4. AMITRIPTYLINE HCL [Concomitant]
     Indication: DEPRESSION
     Dosage: AT BED TIME
     Route: 048
  5. OXAPROZIN [Concomitant]
     Indication: PAIN
     Route: 048
  6. LOMOTIL [Concomitant]
     Indication: DIARRHOEA
     Route: 048
  7. VICODIN [Concomitant]
     Indication: PAIN
     Route: 048
  8. ASPIRIN [Concomitant]
     Indication: DRUG USE FOR UNKNOWN INDICATION
     Route: 048
  9. QUETIAPINE FUMARATE [Concomitant]
     Indication: DEPRESSION
     Route: 048
  10. MIRTAZAPINE [Concomitant]
     Indication: DRUG USE FOR UNKNOWN INDICATION
     Route: 048
  11. HYDROXYCHLOROQUINE PHOSPHATE [Concomitant]
     Indication: RHEUMATOID ARTHRITIS
     Route: 048

REACTIONS (1)
  - DEPRESSION [None]
